FAERS Safety Report 6261289-X (Version None)
Quarter: 2009Q3

REPORT INFORMATION
  Report Type: 
  Country: None (occurrence: None)
  Receive Date: 20090709
  Receipt Date: 20090409
  Transmission Date: 20100115
  Serious: No
  Sender: FDA-Public Use
  Company Number: US-KINGPHARMUSA00001-K200900416

PATIENT
  Sex: Female
  Weight: 94.331 kg

DRUGS (1)
  1. LEVOXYL [Suspect]
     Indication: HYPOTHYROIDISM
     Dosage: UNK MCG
     Route: 048

REACTIONS (2)
  - DIARRHOEA [None]
  - FLUSHING [None]
